FAERS Safety Report 8335264-5 (Version None)
Quarter: 2012Q2

REPORT INFORMATION
  Report Type: 
  Country: None (occurrence: None)
  Receive Date: 20120503
  Receipt Date: 20120425
  Transmission Date: 20120825
  Serious: Yes (Hospitalization, Other)
  Sender: FDA-Public Use
  Company Number: US-ROCHE-734436

PATIENT
  Sex: Female
  Weight: 61.2 kg

DRUGS (2)
  1. ACCUTANE [Suspect]
  2. ACCUTANE [Suspect]
     Indication: ACNE
     Dates: start: 20060101, end: 20070101

REACTIONS (7)
  - UPPER RESPIRATORY TRACT INFECTION [None]
  - HIGH DENSITY LIPOPROTEIN DECREASED [None]
  - INFLAMMATORY BOWEL DISEASE [None]
  - CROHN'S DISEASE [None]
  - INTESTINAL OBSTRUCTION [None]
  - COLITIS [None]
  - DEPRESSION [None]
